FAERS Safety Report 5742774-3 (Version None)
Quarter: 2008Q2

REPORT INFORMATION
  Report Type: 
  Country: None (occurrence: None)
  Receive Date: 20080519
  Receipt Date: 20080509
  Transmission Date: 20081010
  Serious: Yes (Other)
  Sender: FDA-Public Use
  Company Number: FR-ABBOTT-08P-056-0451462-00

PATIENT
  Sex: Female

DRUGS (2)
  1. RITONAVIR [Suspect]
     Indication: HIV INFECTION
  2. INDINIVIR SULFATE [Suspect]
     Indication: HIV INFECTION

REACTIONS (1)
  - ABORTION SPONTANEOUS [None]
